FAERS Safety Report 17599230 (Version 2)
Quarter: 2020Q2

REPORT INFORMATION
  Report Type: Spontaneous
  Country: US (occurrence: US)
  Receive Date: 20200330
  Receipt Date: 20200630
  Transmission Date: 20200713
  Serious: No
  Sender: FDA-Public Use
  Company Number: US-INDIVIOR US-INDV-123558-2020

PATIENT
  Age: 34 Year
  Sex: Male

DRUGS (2)
  1. SUBLOCADE [Suspect]
     Active Substance: BUPRENORPHINE
     Indication: PAIN
  2. SUBLOCADE [Suspect]
     Active Substance: BUPRENORPHINE
     Indication: DRUG USE DISORDER
     Dosage: 300 MILLIGRAM, QMO
     Route: 058
     Dates: start: 201912

REACTIONS (4)
  - Pain [Not Recovered/Not Resolved]
  - Drug withdrawal syndrome [Unknown]
  - Drug screen negative [Unknown]
  - Miosis [Unknown]

NARRATIVE: CASE EVENT DATE: 20200206
